FAERS Safety Report 4750244-4 (Version None)
Quarter: 2005Q3

REPORT INFORMATION
  Report Type: 
  Country: None (occurrence: None)
  Receive Date: 20050818
  Receipt Date: 20050802
  Transmission Date: 20060218
  Serious: Yes (Other)
  Sender: FDA-Public Use
  Company Number: US-2005-003710

PATIENT
  Age: 58 Year
  Sex: Female
  Weight: 81.6 kg

DRUGS (1)
  1. BETASERON [Suspect]
     Indication: MULTIPLE SCLEROSIS
     Dosage: 8 MIU, EVERY 2D, SUBCUTANEOUS
     Route: 058
     Dates: start: 20040322

REACTIONS (3)
  - CHOROIDAL NEOVASCULARISATION [None]
  - MACULAR DEGENERATION [None]
  - RETINAL HAEMORRHAGE [None]
